FAERS Safety Report 5415059-2 (Version None)
Quarter: 2007Q3

REPORT INFORMATION
  Report Type: 
  Country: None (occurrence: None)
  Receive Date: 20070815
  Receipt Date: 20070508
  Transmission Date: 20080115
  Serious: No
  Sender: FDA-Public Use
  Company Number: A0650458A

PATIENT
  Age: 72 Year
  Sex: Male

DRUGS (7)
  1. COREG CR [Suspect]
     Indication: HYPERTENSION
     Dosage: 80MG PER DAY
     Route: 048
  2. PLAVIX [Concomitant]
  3. LIPITOR [Concomitant]
  4. AVAPRO [Concomitant]
  5. ALLOPURINOL [Concomitant]
  6. PROBENECID [Concomitant]
  7. COMPAZINE [Concomitant]

REACTIONS (1)
  - ERECTILE DYSFUNCTION [None]
